FAERS Safety Report 22150331 (Version 1)
Quarter: 2023Q1

REPORT INFORMATION
  Report Type: Spontaneous
  Country: CN (occurrence: CN)
  Receive Date: 20230329
  Receipt Date: 20230329
  Transmission Date: 20230417
  Serious: Yes (Other)
  Sender: FDA-Public Use
  Company Number: CN-SUN PHARMACEUTICAL INDUSTRIES LTD-2023R1-382519

PATIENT
  Age: 29 Year
  Sex: Male

DRUGS (1)
  1. AMPHOTERICIN B [Suspect]
     Active Substance: AMPHOTERICIN B
     Indication: Chemotherapy
     Dosage: ESCALATED FROM 0.1MG/KG TO 3 MG/KG, DAILY
     Route: 042

REACTIONS (4)
  - Hypokalaemia [Unknown]
  - Renal failure [Unknown]
  - Gastrointestinal disorder [Unknown]
  - Hepatic failure [Unknown]
